FAERS Safety Report 5367904-7 (Version None)
Quarter: 2007Q2

REPORT INFORMATION
  Report Type: 
  Country: None (occurrence: None)
  Receive Date: 20070622
  Receipt Date: 20070620
  Transmission Date: 20071010
  Serious: Yes (Hospitalization)
  Sender: FDA-Public Use
  Company Number: US-BOEHRINGER INGELHEIM PHARMACEUTICALS, INC.-2007-BP-05910BP

PATIENT
  Sex: Male

DRUGS (7)
  1. SPIRIVA [Suspect]
     Indication: CHRONIC OBSTRUCTIVE PULMONARY DISEASE
     Route: 055
     Dates: start: 20060101
  2. SPIRIVA [Suspect]
     Indication: EMPHYSEMA
  3. CYMBALTA [Concomitant]
     Indication: DEPRESSION
  4. ATENOLOL [Concomitant]
     Indication: HYPERTENSION
  5. CLARITIN [Concomitant]
  6. XALATAN [Concomitant]
     Route: 031
  7. WARFARIN [Concomitant]

REACTIONS (2)
  - DYSPNOEA [None]
  - THROMBOSIS [None]
